FAERS Safety Report 8863184 (Version 1)
Quarter: 2012Q4

REPORT INFORMATION
  Report Type: Report from Study
  Country: JP (occurrence: JP)
  Receive Date: 20121026
  Receipt Date: 20121026
  Transmission Date: 20130627
  Serious: Yes (Death, Hospitalization)
  Sender: FDA-Public Use
  Company Number: JP-009507513-2006SP007996

PATIENT
  Age: 51 Year
  Sex: Female
  Weight: 43 kg

DRUGS (26)
  1. TEMOZOLOMIDE [Suspect]
     Indication: ANAPLASTIC ASTROCYTOMA
     Dosage: actually daily dose 100 mg
     Route: 048
     Dates: start: 20060919, end: 20061031
  2. TEMOZOLOMIDE [Suspect]
     Dosage: actually daily dose 200 mg
     Route: 048
     Dates: start: 20061129, end: 20061203
  3. TEMOZOLOMIDE [Suspect]
     Dosage: actually daily dose 200 mg
     Route: 048
     Dates: start: 20061227, end: 20061231
  4. TEMOZOLOMIDE [Suspect]
     Dosage: actually daily dose 200 mg
     Route: 048
     Dates: start: 20070124, end: 20070128
  5. TEMOZOLOMIDE [Suspect]
     Dosage: actually daily dose 200 mg
     Route: 048
     Dates: start: 20070221, end: 20070225
  6. TEMOZOLOMIDE [Suspect]
     Dosage: actually daily dose 200 mg
     Route: 048
     Dates: start: 20070321, end: 20070325
  7. TEMOZOLOMIDE [Suspect]
     Dosage: actually daily dose 200 mg
     Route: 048
     Dates: start: 20070418, end: 20070422
  8. TEMOZOLOMIDE [Suspect]
     Dosage: actually daily dose 200 mg
     Route: 048
     Dates: start: 20070516, end: 20070520
  9. TEMOZOLOMIDE [Suspect]
     Dosage: actually daily dose 200 mg
     Route: 048
     Dates: start: 20070613, end: 20070617
  10. TEMOZOLOMIDE [Suspect]
     Dosage: actually daily dose 200 mg
     Route: 048
     Dates: start: 20070711, end: 20070714
  11. TEMOZOLOMIDE [Suspect]
     Dosage: actually daily dose 200 mg
     Route: 048
     Dates: start: 20070808, end: 20070811
  12. TEMOZOLOMIDE [Suspect]
     Dosage: actually daily dose 200 mg
     Route: 048
     Dates: start: 20070903, end: 20070905
  13. TEMOZOLOMIDE [Suspect]
     Dosage: actually daily dose 200 mg
     Route: 048
     Dates: start: 20071001, end: 20071004
  14. TEMOZOLOMIDE [Suspect]
     Dosage: actually daily dose 200 mg
     Route: 048
     Dates: start: 20071029, end: 20071102
  15. TEMOZOLOMIDE [Suspect]
     Dosage: actually daily dose 200 mg
     Route: 048
     Dates: start: 20071126, end: 20071129
  16. TEMOZOLOMIDE [Suspect]
     Dosage: actually daily dose 200 mg
     Route: 048
     Dates: start: 20071219, end: 20071222
  17. TEMOZOLOMIDE [Suspect]
     Dosage: actually daily dose 200 mg
     Route: 048
     Dates: start: 20080121, end: 20080124
  18. TEMOZOLOMIDE [Suspect]
     Dosage: actually daily dose 200 mg
     Route: 048
     Dates: start: 20080218, end: 20080221
  19. TEMOZOLOMIDE [Suspect]
     Dosage: actually daily dose 200 mg
     Route: 048
     Dates: start: 20080317, end: 20080320
  20. TEMOZOLOMIDE [Suspect]
     Dosage: actually daily dose 200 mg
     Route: 048
     Dates: start: 20080414, end: 20080417
  21. TEMOZOLOMIDE [Suspect]
     Dosage: actually daily dose 200 mg
     Route: 048
     Dates: start: 20080512, end: 20080515
  22. TEMOZOLOMIDE [Suspect]
     Dosage: actually daily dose 200 mg
     Route: 048
     Dates: start: 20080609, end: 20080612
  23. TEMOZOLOMIDE [Suspect]
     Dosage: actually daily dose 200 mg
     Route: 048
     Dates: start: 20080702, end: 20080705
  24. TEMOZOLOMIDE [Suspect]
     Dosage: actually daily dose 200 mg
     Route: 048
     Dates: start: 20080805, end: 20080807
  25. GASTER [Concomitant]
     Indication: PROPHYLAXIS
     Route: 048
     Dates: start: 20070611
  26. ZOFRAN [Concomitant]
     Indication: PROPHYLAXIS
     Dosage: UNK
     Route: 048
     Dates: start: 20061202

REACTIONS (7)
  - Disease progression [Fatal]
  - Nausea [Recovered/Resolved]
  - Vomiting [Recovered/Resolved]
  - Lymphocyte count decreased [Recovered/Resolved]
  - Lymphocyte count decreased [Not Recovered/Not Resolved]
  - Nausea [Not Recovered/Not Resolved]
  - Red blood cell count decreased [Recovered/Resolved]
